FAERS Safety Report 25504590 (Version 1)
Quarter: 2025Q3

REPORT INFORMATION
  Report Type: Spontaneous
  Country: US (occurrence: US)
  Receive Date: 20250702
  Receipt Date: 20250702
  Transmission Date: 20251020
  Serious: Yes (Other)
  Sender: BRISTOL-MYERS SQUIBB COMPANY
  Company Number: US-BRISTOL-MYERS SQUIBB COMPANY-2025-092575

PATIENT
  Age: 62 Year
  Sex: Female
  Weight: 70.31 kg

DRUGS (1)
  1. POMALYST [Suspect]
     Active Substance: POMALIDOMIDE
     Indication: Plasma cell myeloma refractory
     Dosage: DAILY FOR 21 DAYS AN THEN 7 DAYS OFF
     Route: 048

REACTIONS (5)
  - Nausea [Not Recovered/Not Resolved]
  - Sluggishness [Not Recovered/Not Resolved]
  - Lethargy [Not Recovered/Not Resolved]
  - Brain fog [Not Recovered/Not Resolved]
  - Neuromyopathy [Not Recovered/Not Resolved]

NARRATIVE: CASE EVENT DATE: 20250627
